APPROVED DRUG PRODUCT: LOSEASONIQUE
Active Ingredient: ETHINYL ESTRADIOL; LEVONORGESTREL
Strength: 0.02MG,0.1MG;0.01MG,N/A
Dosage Form/Route: TABLET;ORAL
Application: N022262 | Product #001 | TE Code: AB
Applicant: TEVA BRANDED PHARMACEUTICAL PRODUCTS R AND D INC
Approved: Oct 24, 2008 | RLD: No | RS: No | Type: RX

PATENTS:
Patent 7855190 | Expires: Dec 5, 2028